FAERS Safety Report 16179208 (Version 1)
Quarter: 2019Q2

REPORT INFORMATION
  Report Type: Spontaneous
  Country: US (occurrence: US)
  Receive Date: 20190410
  Receipt Date: 20190410
  Transmission Date: 20190711
  Serious: Yes (Death, Hospitalization, Other)
  Sender: FDA-Public Use
  Company Number: US-TARO-2019TAR00267

PATIENT
  Sex: Male

DRUGS (2)
  1. AMIODARONE HCL TABLET 200 MG [Suspect]
     Active Substance: AMIODARONE HYDROCHLORIDE
     Indication: ATRIAL FIBRILLATION
     Dosage: UNK
     Route: 048
     Dates: start: 201108
  2. UNSPECIFIED MEDICATIONS [Suspect]
     Active Substance: UNSPECIFIED INGREDIENT
     Indication: PULMONARY FIBROSIS
     Dosage: UNK

REACTIONS (6)
  - Dizziness [Unknown]
  - Pneumonia [Unknown]
  - Unevaluable event [Not Recovered/Not Resolved]
  - Respiratory failure [Fatal]
  - Pulmonary fibrosis [Fatal]
  - Off label use [Recovered/Resolved]

NARRATIVE: CASE EVENT DATE: 201108
